FAERS Safety Report 7506088-3 (Version None)
Quarter: 2011Q2

REPORT INFORMATION
  Report Type: 
  Country: None (occurrence: None)
  Receive Date: 20110526
  Receipt Date: 20110519
  Transmission Date: 20111010
  Serious: Yes (Hospitalization)
  Sender: FDA-Public Use
  Company Number: JP-ROCHE-778619

PATIENT
  Sex: Female

DRUGS (3)
  1. TOCILIZUMAB [Suspect]
     Indication: RHEUMATOID ARTHRITIS
     Dosage: NOTE: 270-320MG
     Route: 041
     Dates: start: 20080627, end: 20091130
  2. TOCILIZUMAB [Suspect]
     Route: 041
     Dates: start: 20100430, end: 20100622
  3. TOCILIZUMAB [Suspect]
     Dosage: ^IT IS ANOTHER YUAN, IT ADMINISTERS, IT EXISTS, AND IT IS UNSPECIFIED LIKE^.
     Route: 041

REACTIONS (1)
  - PATELLA FRACTURE [None]
